FAERS Safety Report 22654151 (Version 13)
Quarter: 2025Q2

REPORT INFORMATION
  Report Type: Spontaneous
  Country: AR (occurrence: AR)
  Receive Date: 20230629
  Receipt Date: 20250509
  Transmission Date: 20250716
  Serious: Yes (Other)
  Sender: MYLAN
  Company Number: AR-MYLANLABS-2023M1055357

PATIENT
  Age: 26 Year
  Sex: Female

DRUGS (3)
  1. CLOZAPINE [Suspect]
     Active Substance: CLOZAPINE
     Indication: Product used for unknown indication
  2. CLOZAPINE [Suspect]
     Active Substance: CLOZAPINE
  3. CLOZAPINE [Suspect]
     Active Substance: CLOZAPINE
     Dosage: 75 MILLIGRAM, QD
     Dates: start: 20230630

REACTIONS (8)
  - Neutropenia [Recovered/Resolved]
  - Leukopenia [Recovered/Resolved]
  - Respiratory disorder [Recovered/Resolved]
  - Lymphocyte count increased [Not Recovered/Not Resolved]
  - Eosinophil count decreased [Not Recovered/Not Resolved]
  - Lymphocyte count decreased [Recovered/Resolved]
  - Monocyte count decreased [Recovered/Resolved]
  - Haemoglobin decreased [Unknown]

NARRATIVE: CASE EVENT DATE: 20230518
